FAERS Safety Report 8826307 (Version 2)
Quarter: 2013Q1

REPORT INFORMATION
  Report Type: Spontaneous
  Country: US (occurrence: US)
  Receive Date: 20121008
  Receipt Date: 20130108
  Transmission Date: 20140127
  Serious: No
  Sender: FDA-Public Use
  Company Number: US-GLAXOSMITHKLINE-A0991473A

PATIENT
  Age: 42 Year
  Sex: Female
  Weight: 50 kg

DRUGS (5)
  1. POTIGA [Suspect]
     Indication: COMPLEX PARTIAL SEIZURES
     Dosage: 100MG THREE TIMES PER DAY
     Route: 048
     Dates: start: 201205, end: 20120703
  2. DILANTIN [Concomitant]
     Route: 048
     Dates: start: 1992
  3. PRIMIDONE [Concomitant]
     Route: 048
     Dates: start: 1992
  4. FENTANYL [Concomitant]
     Indication: BACK PAIN
  5. OXYCODONE [Concomitant]
     Indication: BACK PAIN

REACTIONS (2)
  - Urinary retention [Recovering/Resolving]
  - Urinary hesitation [Recovering/Resolving]
